FAERS Safety Report 6105992-0 (Version None)
Quarter: 2009Q1

REPORT INFORMATION
  Report Type: 
  Country: None (occurrence: None)
  Receive Date: 20090306
  Receipt Date: 20081203
  Transmission Date: 20090719
  Serious: No
  Sender: FDA-Public Use
  Company Number: US-BRISTOL-MYERS SQUIBB COMPANY-14431084

PATIENT
  Age: 62 Year
  Sex: Female

DRUGS (1)
  1. TAXOL [Suspect]

REACTIONS (3)
  - BACK PAIN [None]
  - CHEST DISCOMFORT [None]
  - PRURITUS [None]
